FAERS Safety Report 10450470 (Version 1)
Quarter: 2014Q3

REPORT INFORMATION
  Report Type: Spontaneous
  Country: US (occurrence: US)
  Receive Date: 20140912
  Receipt Date: 20140912
  Transmission Date: 20150326
  Serious: Yes (Hospitalization)
  Sender: FDA-Public Use
  Company Number: US-GLAXOSMITHKLINE-A1043913A

PATIENT
  Age: 50 Year
  Sex: Female

DRUGS (7)
  1. VESICARE [Concomitant]
     Active Substance: SOLIFENACIN SUCCINATE
  2. ADVAIR HFA [Suspect]
     Active Substance: FLUTICASONE PROPIONATE\SALMETEROL XINAFOATE
     Indication: CHRONIC OBSTRUCTIVE PULMONARY DISEASE
     Dosage: 2PUFF TWICE PER DAY
     Route: 055
  3. SEREVENT [Suspect]
     Active Substance: SALMETEROL XINAFOATE
     Indication: CHRONIC OBSTRUCTIVE PULMONARY DISEASE
     Dosage: 2PUFF TWICE PER DAY
     Route: 055
     Dates: start: 1994
  4. OXYGEN. [Concomitant]
     Active Substance: OXYGEN
  5. ADVAIR HFA [Suspect]
     Active Substance: FLUTICASONE PROPIONATE\SALMETEROL XINAFOATE
     Indication: CHRONIC OBSTRUCTIVE PULMONARY DISEASE
     Dosage: 1PUFF TWICE PER DAY
     Route: 055
     Dates: end: 20130808
  6. OGEN [Concomitant]
     Active Substance: ESTROPIPATE
  7. SYNTHROID [Concomitant]
     Active Substance: LEVOTHYROXINE SODIUM

REACTIONS (17)
  - Oral candidiasis [Recovering/Resolving]
  - Throat irritation [Recovering/Resolving]
  - Pulmonary mass [Recovered/Resolved]
  - Lung neoplasm [Unknown]
  - Dyspnoea [Recovered/Resolved]
  - Oropharyngeal pain [Recovered/Resolved]
  - Increased tendency to bruise [Not Recovered/Not Resolved]
  - Discomfort [Unknown]
  - Benign neoplasm of thyroid gland [Recovered/Resolved]
  - Pneumonia [Recovered/Resolved]
  - Lung neoplasm malignant [Unknown]
  - Respiration abnormal [Recovered/Resolved]
  - Lymphadenectomy [Recovered/Resolved]
  - Pneumonectomy [Recovered/Resolved]
  - Thyroid neoplasm [Recovered/Resolved]
  - Incorrect dosage administered [Recovered/Resolved]
  - Chest pain [Unknown]

NARRATIVE: CASE EVENT DATE: 2002
